FAERS Safety Report 24279610 (Version 2)
Quarter: 2024Q3

REPORT INFORMATION
  Report Type: Spontaneous
  Country: US (occurrence: None)
  Receive Date: 20240904
  Receipt Date: 20240916
  Transmission Date: 20241017
  Serious: Yes (Other)
  Sender: EMMAUS LIFE SCIENCES
  Company Number: US-Emmaus Medical, Inc.-EMM202408-000425

PATIENT
  Age: 55 Year
  Sex: Female

DRUGS (3)
  1. ENDARI [Suspect]
     Active Substance: GLUTAMINE
     Indication: Sickle cell disease
     Dosage: 5 G
     Route: 048
     Dates: start: 202407
  2. ENDARI [Suspect]
     Active Substance: GLUTAMINE
     Indication: Sickle cell anaemia with crisis
  3. ADEMPAS [Concomitant]
     Active Substance: RIOCIGUAT
     Indication: Product used for unknown indication
     Dosage: 01 MG
     Route: 065

REACTIONS (7)
  - Dyspnoea exertional [Unknown]
  - Abdominal discomfort [Recovering/Resolving]
  - Palpitations [Unknown]
  - Decreased appetite [Unknown]
  - Pain [Unknown]
  - Headache [Unknown]
  - Nausea [Not Recovered/Not Resolved]

NARRATIVE: CASE EVENT DATE: 20240101
